FAERS Safety Report 15389752 (Version 2)
Quarter: 2018Q4

REPORT INFORMATION
  Report Type: Spontaneous
  Country: US (occurrence: US)
  Receive Date: 20180917
  Receipt Date: 20181112
  Transmission Date: 20190204
  Serious: No
  Sender: FDA-Public Use
  Company Number: US-CELGENEUS-USA-20180902111

PATIENT
  Age: 70 Year
  Sex: Female
  Weight: 52.57 kg

DRUGS (9)
  1. METOPROLOL. [Concomitant]
     Active Substance: METOPROLOL
     Indication: HYPERTENSION
     Dosage: 30 MILLIGRAM
     Route: 065
  2. OTEZLA [Suspect]
     Active Substance: APREMILAST
     Indication: PSORIASIS
     Dosage: 60 MILLIGRAM
     Route: 048
     Dates: start: 20180428
  3. CALCIPOTRIENE. [Concomitant]
     Active Substance: CALCIPOTRIENE
     Indication: PSORIASIS
     Dosage: 0.005 PERCENT
     Route: 061
     Dates: start: 201802
  4. LACTOSE [Concomitant]
     Active Substance: LACTOSE
     Indication: PRODUCT USED FOR UNKNOWN INDICATION
     Dosage: 10MG/15ML
     Route: 065
  5. CLONIDINE HCL [Concomitant]
     Active Substance: CLONIDINE HYDROCHLORIDE
     Indication: HYPERTENSION
     Dosage: 0.1 MILLIGRAM
     Route: 065
  6. OTEZLA [Suspect]
     Active Substance: APREMILAST
     Dosage: 10 MILLIGRAM
     Route: 048
     Dates: start: 20180921
  7. METOPROLOL. [Concomitant]
     Active Substance: METOPROLOL
     Dosage: 12.5 MILLIGRAM
     Route: 065
  8. MOMETASONE FUROATE. [Concomitant]
     Active Substance: MOMETASONE FUROATE
     Indication: MULTIPLE ALLERGIES
     Dosage: 50 MICROGRAM
     Route: 045
  9. OTEZLA [Suspect]
     Active Substance: APREMILAST
     Dosage: 60 MILLIGRAM
     Route: 048
     Dates: start: 20180914

REACTIONS (4)
  - Psoriasis [Recovering/Resolving]
  - Product dose omission [Unknown]
  - Weight decreased [Recovering/Resolving]
  - Diarrhoea [Recovered/Resolved]

NARRATIVE: CASE EVENT DATE: 2018
